FAERS Safety Report 21409253 (Version 2)
Quarter: 2022Q4

REPORT INFORMATION
  Report Type: Spontaneous
  Country: US (occurrence: US)
  Receive Date: 20221004
  Receipt Date: 20221018
  Transmission Date: 20230113
  Serious: Yes (Other)
  Sender: FDA-Public Use
  Company Number: US-PFIZER INC-PV202200075997

PATIENT
  Age: 74 Year
  Sex: Female

DRUGS (1)
  1. XELJANZ XR [Suspect]
     Active Substance: TOFACITINIB CITRATE
     Dosage: 11 MG, 1X/DAY

REACTIONS (6)
  - Macular degeneration [Not Recovered/Not Resolved]
  - Memory impairment [Unknown]
  - Fear [Unknown]
  - Pain [Unknown]
  - Sensitivity to weather change [Unknown]
  - Psychiatric symptom [Unknown]
